FAERS Safety Report 6226561-8 (Version None)
Quarter: 2009Q2

REPORT INFORMATION
  Report Type: 
  Country: None (occurrence: None)
  Receive Date: 20090612
  Receipt Date: 20090601
  Transmission Date: 20091009
  Serious: Yes (Hospitalization)
  Sender: FDA-Public Use
  Company Number: SE-ELI_LILLY_AND_COMPANY-SE200906000405

PATIENT
  Sex: Male
  Weight: 76 kg

DRUGS (1)
  1. F1J-EW-HMGD PH IV OPTIMAL TIME FOR SWITC [Suspect]
     Indication: MAJOR DEPRESSION
     Dates: start: 20090406

REACTIONS (3)
  - INFECTION [None]
  - KIDNEY INFECTION [None]
  - URINARY RETENTION [None]
